FAERS Safety Report 17776172 (Version 7)
Quarter: 2020Q3

REPORT INFORMATION
  Report Type: Spontaneous
  Country: US (occurrence: US)
  Receive Date: 20200513
  Receipt Date: 20200702
  Transmission Date: 20201102
  Serious: Yes (Hospitalization, Other)
  Sender: FDA-Public Use
  Company Number: US-PFIZER INC-2020190337

PATIENT
  Age: 56 Year
  Sex: Female

DRUGS (4)
  1. SUTENT [Suspect]
     Active Substance: SUNITINIB MALATE
     Indication: RENAL CANCER
     Dosage: 50 MG, UNK
     Route: 065
  2. ELIQUIS [Suspect]
     Active Substance: APIXABAN
     Dosage: UNK
     Route: 065
  3. SUTENT [Suspect]
     Active Substance: SUNITINIB MALATE
     Indication: RENAL CELL CARCINOMA
  4. APIXABAN [Suspect]
     Active Substance: APIXABAN
     Dosage: UNK
     Route: 065

REACTIONS (12)
  - Eating disorder [Unknown]
  - White blood cell count decreased [Unknown]
  - Contusion [Unknown]
  - Arthritis [Unknown]
  - Fall [Unknown]
  - Pulmonary embolism [Unknown]
  - Weight decreased [Recovering/Resolving]
  - Vomiting [Unknown]
  - Oral pain [Unknown]
  - Gastrointestinal wall thickening [Unknown]
  - Neoplasm [Unknown]
  - Nausea [Unknown]

NARRATIVE: CASE EVENT DATE: 202006
